FAERS Safety Report 7070370-7 (Version None)
Quarter: 2010Q4

REPORT INFORMATION
  Report Type: 
  Country: None (occurrence: None)
  Receive Date: 20101029
  Receipt Date: 20101021
  Transmission Date: 20110411
  Serious: Yes (Hospitalization)
  Sender: FDA-Public Use
  Company Number: US-BIOGENIDEC-2010BI031485

PATIENT
  Age: 37 Year
  Sex: Male
  Weight: 76 kg

DRUGS (2)
  1. TYSABRI [Suspect]
     Indication: MULTIPLE SCLEROSIS
     Route: 042
     Dates: start: 20070228, end: 20090311
  2. TYSABRI [Suspect]
     Route: 042
     Dates: start: 20100816

REACTIONS (4)
  - BACK PAIN [None]
  - INTERVERTEBRAL DISC DISORDER [None]
  - NAUSEA [None]
  - SPINAL DISORDER [None]
